FAERS Safety Report 19144805 (Version 1)
Quarter: 2021Q2

REPORT INFORMATION
  Report Type: Spontaneous
  Country: US (occurrence: US)
  Receive Date: 20210415
  Receipt Date: 20210415
  Transmission Date: 20210717
  Serious: Yes (Other)
  Sender: FDA-Public Use
  Company Number: None

PATIENT
  Age: 64 Year
  Sex: Female
  Weight: 70.2 kg

DRUGS (9)
  1. AZELASTINE HCL NASAL SOLUTION 0.15% NDC 45802?026?83 [Suspect]
     Active Substance: AZELASTINE HYDROCHLORIDE
     Indication: UPPER-AIRWAY COUGH SYNDROME
     Dosage: ?          QUANTITY:200 SPRAY(S);?
     Route: 055
     Dates: start: 20201210, end: 20210226
  2. CITRACAL [Concomitant]
     Active Substance: CALCIUM CITRATE
  3. TYLENOL EXTRA STRENGTH [Concomitant]
     Active Substance: ACETAMINOPHEN
  4. PAROXETINE. [Concomitant]
     Active Substance: PAROXETINE
  5. AZELASTINE HCL NASAL SOLUTION 0.15% NDC 45802?026?83 [Suspect]
     Active Substance: AZELASTINE HYDROCHLORIDE
     Indication: COUGH
     Dosage: ?          QUANTITY:200 SPRAY(S);?
     Route: 055
     Dates: start: 20201210, end: 20210226
  6. ALENDRONATE [Concomitant]
     Active Substance: ALENDRONATE SODIUM
  7. LEVOTHYROXINE. [Concomitant]
     Active Substance: LEVOTHYROXINE
  8. MULTIPLE VITAMIN [Concomitant]
     Active Substance: VITAMINS
  9. AZELASTINE HCL NASAL SOLUTION 0.15% NDC 45802?026?83 [Suspect]
     Active Substance: AZELASTINE HYDROCHLORIDE
     Indication: MULTIPLE ALLERGIES
     Dosage: ?          QUANTITY:200 SPRAY(S);?
     Route: 055
     Dates: start: 20201210, end: 20210226

REACTIONS (1)
  - Heart rate increased [None]

NARRATIVE: CASE EVENT DATE: 20210226
